FAERS Safety Report 12500186 (Version 2)
Quarter: 2016Q3

REPORT INFORMATION
  Report Type: Spontaneous
  Country: JP (occurrence: JP)
  Receive Date: 20160627
  Receipt Date: 20160803
  Transmission Date: 20161109
  Serious: Yes (Other)
  Sender: FDA-Public Use
  Company Number: JP-GLAXOSMITHKLINE-JP2016JPN088067

PATIENT
  Age: 52 Year
  Sex: Female

DRUGS (2)
  1. UNKNOWN DRUG [Concomitant]
     Active Substance: UNSPECIFIED INGREDIENT
     Indication: PULMONARY ARTERIAL HYPERTENSION
     Dosage: UNK
  2. VELETRI [Suspect]
     Active Substance: EPOPROSTENOL
     Dosage: UNK
     Route: 041

REACTIONS (4)
  - Ventilation perfusion mismatch [Unknown]
  - Hypoxia [Unknown]
  - Right ventricular failure [Unknown]
  - Condition aggravated [Unknown]
